FAERS Safety Report 25460648 (Version 1)
Quarter: 2025Q2

REPORT INFORMATION
  Report Type: Spontaneous
  Country: DE (occurrence: DE)
  Receive Date: 20250620
  Receipt Date: 20250620
  Transmission Date: 20250716
  Serious: Yes (Disabling, Congenital Anomaly)
  Sender: INSUD PHARMA
  Company Number: DE-EXELTIS PHARMACEUTICAL HOLDING, S.L.-2506DE04770

PATIENT
  Sex: Male

DRUGS (1)
  1. PROGESTERONE [Suspect]
     Active Substance: PROGESTERONE
     Indication: Progesterone deficiency
     Dosage: 1 DOSAGE FORM, QD
     Route: 064

REACTIONS (2)
  - Muenke syndrome [Not Recovered/Not Resolved]
  - Exposure during pregnancy [Unknown]
